FAERS Safety Report 5373427-1 (Version None)
Quarter: 2007Q2

REPORT INFORMATION
  Report Type: 
  Country: None (occurrence: None)
  Receive Date: 20070626
  Receipt Date: 20070626
  Transmission Date: 20071010
  Serious: Yes (Hospitalization)
  Sender: FDA-Public Use
  Company Number: None

PATIENT
  Age: 59 Year
  Sex: Male
  Weight: 54.3 kg

DRUGS (8)
  1. GEMCITABINE HCL [Suspect]
     Indication: NEOPLASM MALIGNANT
     Dosage: 1000MG/M2 DAYS 1 + 8 OF 21
     Dates: start: 20070531
  2. GEMCITABINE HCL [Suspect]
     Indication: NEOPLASM MALIGNANT
     Dosage: 1000MG/M2 DAYS 1 + 8 OF 21
     Dates: start: 20070611
  3. DOXORUBICIN HCL [Suspect]
     Indication: NEOPLASM MALIGNANT
     Dosage: 25MG/M2 DAYS 1 + 8 OF 21
     Dates: start: 20070531
  4. DOXORUBICIN HCL [Suspect]
     Indication: NEOPLASM MALIGNANT
     Dosage: 25MG/M2 DAYS 1 + 8 OF 21
     Dates: start: 20070611
  5. PEPCID [Concomitant]
  6. PROTONIX [Concomitant]
  7. MORPHINE ELIXIR [Concomitant]
  8. AUGMENTIN '125' [Concomitant]

REACTIONS (4)
  - BLOOD PRESSURE DECREASED [None]
  - DEHYDRATION [None]
  - HEART RATE INCREASED [None]
  - WEIGHT DECREASED [None]
